FAERS Safety Report 13000749 (Version 2)
Quarter: 2016Q4

REPORT INFORMATION
  Report Type: Spontaneous
  Country: PT (occurrence: PT)
  Receive Date: 20161206
  Receipt Date: 20161212
  Transmission Date: 20170207
  Serious: Yes (Other)
  Sender: FDA-Public Use
  Company Number: PT-AMGEN-PRTNI2016171450

PATIENT
  Age: 31 Year
  Sex: Female

DRUGS (3)
  1. PENTOXIFYLLINE. [Concomitant]
     Active Substance: PENTOXIFYLLINE
     Indication: SCLERODERMA
     Dosage: UNK
  2. HYDROXYCHLOROQUINE [Concomitant]
     Active Substance: HYDROXYCHLOROQUINE
     Indication: SCLERODERMA
     Dosage: UNK
  3. ENBREL [Suspect]
     Active Substance: ETANERCEPT
     Indication: SCLERODERMA
     Dosage: 25 MG, 2X/WEEK
     Route: 065

REACTIONS (2)
  - Product use issue [Unknown]
  - Bacterial pyelonephritis [Unknown]
